FAERS Safety Report 22366793 (Version 10)
Quarter: 2024Q2

REPORT INFORMATION
  Report Type: Spontaneous
  Country: US (occurrence: US)
  Receive Date: 20230525
  Receipt Date: 20240514
  Transmission Date: 20240716
  Serious: Yes (Other)
  Sender: FDA-Public Use
  Company Number: US-PFIZER INC-PV202300089476

PATIENT
  Age: 81 Year
  Sex: Male

DRUGS (3)
  1. RETACRIT [Suspect]
     Active Substance: EPOETIN ALFA-EPBX
     Indication: Myelodysplastic syndrome
     Dosage: 60000 IU, EVERY 2 WEEKS
  2. RETACRIT [Suspect]
     Active Substance: EPOETIN ALFA-EPBX
     Indication: Haemoglobin decreased
     Dosage: 40000 IU/ML (EVERY 2 WEEKS)
  3. RETACRIT [Suspect]
     Active Substance: EPOETIN ALFA-EPBX
     Dosage: 60000 IU (INJECT RETACRIT 20,000 UNITS SQ EVERY 4 WEEKS WITH RETACRIT 40,000 UNITS)
     Route: 058

REACTIONS (2)
  - Dementia [Unknown]
  - Off label use [Unknown]
